FAERS Safety Report 8128398-1 (Version None)
Quarter: 2012Q1

REPORT INFORMATION
  Report Type: 
  Country: None (occurrence: None)
  Receive Date: 20120210
  Receipt Date: 20120206
  Transmission Date: 20120608
  Serious: Yes (Hospitalization, Disabling, Other)
  Sender: FDA-Public Use
  Company Number: US-PFIZER INC-2011153139

PATIENT
  Sex: Female

DRUGS (3)
  1. CHANTIX [Suspect]
     Indication: SMOKING CESSATION THERAPY
     Dosage: UNK
     Route: 048
     Dates: start: 20070305, end: 20070310
  2. EFFEXOR [Concomitant]
     Indication: ANXIETY
     Dosage: UNK
     Dates: start: 20010101
  3. EFFEXOR [Concomitant]
     Indication: DEPRESSION

REACTIONS (6)
  - CONVULSION [None]
  - ANXIETY [None]
  - CONFUSIONAL STATE [None]
  - CARDIAC ARREST [None]
  - DEPRESSION [None]
  - AMNESIA [None]
